FAERS Safety Report 18798428 (Version 1)
Quarter: 2021Q1

REPORT INFORMATION
  Report Type: Spontaneous
  Country: IN (occurrence: US)
  Receive Date: 20210128
  Receipt Date: 20210128
  Transmission Date: 20210419
  Serious: No
  Sender: FDA-Public Use
  Company Number: IN-ASPEN-GLO2020US011965

PATIENT

DRUGS (3)
  1. BENZTROPINE MESYLATE. [Suspect]
     Active Substance: BENZTROPINE MESYLATE
     Indication: DYSTONIA
     Dosage: 1 MG, BID
     Route: 048
  2. DIPHENHYDRAMINE. [Suspect]
     Active Substance: DIPHENHYDRAMINE
     Indication: DYSTONIA
     Dosage: 25 MG THREE TO FOUR TIMES DAILY
     Route: 065
  3. DIPHENHYDRAMINE. [Suspect]
     Active Substance: DIPHENHYDRAMINE
     Dosage: 25 MG, BID
     Route: 065

REACTIONS (2)
  - Dry eye [Unknown]
  - Dry mouth [Unknown]
